FAERS Safety Report 5392796-X (Version None)
Quarter: 2007Q3

REPORT INFORMATION
  Report Type: 
  Country: None (occurrence: None)
  Receive Date: 20070720
  Receipt Date: 20070711
  Transmission Date: 20080115
  Serious: Yes (Hospitalization)
  Sender: FDA-Public Use
  Company Number: CH-PFIZER INC-2007054126

PATIENT
  Sex: Male
  Weight: 97 kg

DRUGS (2)
  1. SU-011,248 [Suspect]
     Route: 048
     Dates: start: 20070425, end: 20070523
  2. SU-011,248 [Suspect]
     Route: 048
     Dates: start: 20070608, end: 20070611

REACTIONS (1)
  - CARDIAC FAILURE [None]
